FAERS Safety Report 6283137 (Version 11)
Quarter: 2013Q4

REPORT INFORMATION
  Report Type: Spontaneous
  Country: US (occurrence: US)
  Receive Date: 20070409
  Receipt Date: 20131113
  Transmission Date: 20140711
  Serious: Yes (Death, Hospitalization, Other)
  Sender: FDA-Public Use
  Company Number: PHEH2007US03752

PATIENT
  Sex: Male

DRUGS (11)
  1. ZOMETA [Suspect]
     Dates: start: 200409, end: 200607
  2. EFUDEX [Concomitant]
  3. ZOFRAN [Concomitant]
     Dosage: 8 MG, TID
  4. PREDNISONE [Concomitant]
     Dosage: 10 MG, BID
  5. OXYCONTIN [Concomitant]
     Dosage: 10 MG, Q12H
  6. KYTRIL [Concomitant]
     Dosage: 1 MG, Q12H
  7. FLOMAX [Concomitant]
     Dosage: 0.4 MG, QD
  8. EFFEXOR [Concomitant]
     Dosage: 25 MG, QD
  9. COMPAZINE [Concomitant]
     Dosage: 10 MG, Q14H, PRN
  10. SENOKOT [Concomitant]
  11. ALEVE [Concomitant]

REACTIONS (53)
  - Prostate cancer [Fatal]
  - Osteonecrosis of jaw [Unknown]
  - General physical health deterioration [Unknown]
  - Pain [Unknown]
  - Anxiety [Unknown]
  - Decreased interest [Unknown]
  - Pain in jaw [Recovered/Resolved]
  - Bone disorder [Unknown]
  - Metastases to bone [Unknown]
  - Radiculopathy [Unknown]
  - Intervertebral disc protrusion [Unknown]
  - Back pain [Recovering/Resolving]
  - Hypoaesthesia [Unknown]
  - Spinal disorder [Unknown]
  - Urinary retention [Unknown]
  - Bone lesion [Unknown]
  - Spinal column stenosis [Unknown]
  - Facet joint syndrome [Unknown]
  - Aerophagia [Unknown]
  - Large intestinal obstruction [Unknown]
  - Bone marrow oedema [Unknown]
  - Intervertebral disc degeneration [Unknown]
  - Fall [Unknown]
  - Dyspnoea exertional [Unknown]
  - Anaemia [Unknown]
  - Constipation [Unknown]
  - Pain in extremity [Unknown]
  - Paraesthesia [Unknown]
  - Injury [Unknown]
  - Nocturia [Unknown]
  - Oedema peripheral [Unknown]
  - Atelectasis [Unknown]
  - Arteriosclerosis [Unknown]
  - Bronchitis [Unknown]
  - Cough [Unknown]
  - Tricuspid valve incompetence [Unknown]
  - Pulmonary hypertension [Unknown]
  - Aortic valve disease [Unknown]
  - Aortic valve calcification [Unknown]
  - Aortic valve incompetence [Unknown]
  - Mitral valve incompetence [Unknown]
  - Haemorrhoidal haemorrhage [Unknown]
  - Herpes zoster [Recovered/Resolved]
  - Aortic dilatation [Unknown]
  - Abdominal pain [Unknown]
  - Vomiting [Unknown]
  - Bladder outlet obstruction [Unknown]
  - Lordosis [Unknown]
  - Vertebral foraminal stenosis [Unknown]
  - Mouth ulceration [Unknown]
  - Exostosis [Unknown]
  - Urinary tract infection [Unknown]
  - Neuropathy peripheral [Unknown]
